FAERS Safety Report 6575265-0 (Version None)
Quarter: 2010Q1

REPORT INFORMATION
  Report Type: 
  Country: None (occurrence: None)
  Receive Date: 20100209
  Receipt Date: 20100201
  Transmission Date: 20100710
  Serious: Yes (Other)
  Sender: FDA-Public Use
  Company Number: JP-ASTRAZENECA-2010SE03421

PATIENT
  Sex: Male

DRUGS (3)
  1. XYLOCAINE [Suspect]
     Indication: ENDOSCOPY
     Dosage: DOSE UNKNOWN
     Route: 049
  2. BUSCOPAN [Suspect]
     Dosage: DOSE UNKNOWN
     Route: 048
  3. HORIZON [Concomitant]
     Dosage: DOSE UNKNOWN
     Route: 048

REACTIONS (1)
  - ANAPHYLACTIC SHOCK [None]
